FAERS Safety Report 8601250-0 (Version None)
Quarter: 2012Q3

REPORT INFORMATION
  Report Type: 
  Country: None (occurrence: None)
  Receive Date: 20120817
  Receipt Date: 20120815
  Transmission Date: 20120928
  Serious: Yes (Life-Threatening, Hospitalization)
  Sender: FDA-Public Use
  Company Number: PHEH2012US015566

PATIENT
  Sex: Male
  Weight: 132.11 kg

DRUGS (1)
  1. TASIGNA [Suspect]
     Indication: CHRONIC MYELOID LEUKAEMIA
     Dosage: 4 DF, FOR 2 DAYS
     Route: 048
     Dates: start: 20120727, end: 20120730

REACTIONS (8)
  - PNEUMONITIS [None]
  - FATIGUE [None]
  - MALAISE [None]
  - DYSPNOEA [None]
  - RENAL FAILURE [None]
  - ACUTE RESPIRATORY FAILURE [None]
  - NAUSEA [None]
  - COUGH [None]
